FAERS Safety Report 6556677-8 (Version None)
Quarter: 2010Q1

REPORT INFORMATION
  Report Type: 
  Country: None (occurrence: None)
  Receive Date: 20100125
  Receipt Date: 20100111
  Transmission Date: 20100710
  Serious: Yes (Life-Threatening, Other)
  Sender: FDA-Public Use
  Company Number: MC200900434

PATIENT
  Age: 53 Year
  Sex: Female
  Weight: 70 kg

DRUGS (6)
  1. ANGIOMAX [Suspect]
     Indication: PERCUTANEOUS CORONARY INTERVENTION
     Dosage: 0.75 MG/KG, BOLUS, INTRAVENOUS
     Route: 040
     Dates: start: 20091212, end: 20091212
  2. ANGIOMAX [Suspect]
     Dosage: 1.75 MG/KG, HR, INTRAVENOUS
     Route: 042
     Dates: start: 20091212, end: 20091212
  3. TNKASE [Concomitant]
  4. CLOPIDOGREL [Concomitant]
  5. ASPIRIN (ACETY6LSALICYLIC ACID) [Concomitant]
  6. LYRICA [Concomitant]

REACTIONS (4)
  - AMNESIA [None]
  - CARDIAC ARREST [None]
  - CORONARY ARTERY THROMBOSIS [None]
  - THROMBOSIS IN DEVICE [None]
